FAERS Safety Report 20855982 (Version 1)
Quarter: 2022Q2

REPORT INFORMATION
  Report Type: Report from Study
  Country: US (occurrence: None)
  Receive Date: 20220520
  Receipt Date: 20220520
  Transmission Date: 20220721
  Serious: Yes (Life-Threatening, Other)
  Sender: FDA-Public Use
  Company Number: US-VistaPharm, Inc.-VER202205-000445

PATIENT

DRUGS (8)
  1. PHENYTOIN [Suspect]
     Active Substance: PHENYTOIN
     Indication: Ductal adenocarcinoma of pancreas
     Dosage: 50 MG
     Route: 065
  2. PHENYTOIN [Suspect]
     Active Substance: PHENYTOIN
     Dosage: 50 MG
     Route: 065
  3. METHOXSALEN [Suspect]
     Active Substance: METHOXSALEN
     Indication: Ductal adenocarcinoma of pancreas
     Dosage: 10 MG
     Route: 065
  4. METHOXSALEN [Suspect]
     Active Substance: METHOXSALEN
     Dosage: 10 MG
     Route: 065
  5. RACEMETYROSINE [Suspect]
     Active Substance: RACEMETYROSINE
     Indication: Ductal adenocarcinoma of pancreas
     Dosage: 920 MG
     Route: 065
  6. RACEMETYROSINE [Suspect]
     Active Substance: RACEMETYROSINE
     Dosage: 920 MG
     Route: 065
  7. SIROLIMUS [Suspect]
     Active Substance: SIROLIMUS
     Indication: Ductal adenocarcinoma of pancreas
     Dosage: 0.5 MG
     Route: 065
  8. SIROLIMUS [Suspect]
     Active Substance: SIROLIMUS
     Dosage: 0.5 MG
     Route: 065

REACTIONS (3)
  - Hypotension [Recovered/Resolved]
  - Abdominal pain [Recovered/Resolved]
  - Off label use [Unknown]
